FAERS Safety Report 8305150-5 (Version None)
Quarter: 2012Q2

REPORT INFORMATION
  Report Type: 
  Country: None (occurrence: None)
  Receive Date: 20120423
  Receipt Date: 20120417
  Transmission Date: 20120825
  Serious: Yes (Hospitalization)
  Sender: FDA-Public Use
  Company Number: US-AMGEN-USASP2012024185

PATIENT
  Sex: Female
  Weight: 51.3 kg

DRUGS (1)
  1. SENSIPAR [Suspect]
     Indication: PRODUCT USED FOR UNKNOWN INDICATION

REACTIONS (4)
  - WEIGHT DECREASED [None]
  - DYSPNOEA [None]
  - PNEUMONIA [None]
  - CARDIAC DISORDER [None]
